FAERS Safety Report 19596630 (Version 1)
Quarter: 2021Q3

REPORT INFORMATION
  Report Type: Spontaneous
  Country: FR (occurrence: FR)
  Receive Date: 20210722
  Receipt Date: 20210722
  Transmission Date: 20211014
  Serious: Yes (Hospitalization, Other)
  Sender: FDA-Public Use
  Company Number: FR-MYLANLABS-2021M1043377

PATIENT
  Age: 8 Decade
  Sex: Male

DRUGS (1)
  1. EVEROLIMUS. [Suspect]
     Active Substance: EVEROLIMUS
     Indication: METASTATIC RENAL CELL CARCINOMA
     Dosage: 10 MILLIGRAM, QD
     Route: 065
     Dates: start: 201008, end: 201311

REACTIONS (4)
  - Dyscalculia [Unknown]
  - Lymphopenia [Not Recovered/Not Resolved]
  - Human herpesvirus 6 encephalitis [Recovering/Resolving]
  - Hypogammaglobulinaemia [Recovering/Resolving]

NARRATIVE: CASE EVENT DATE: 2013
